FAERS Safety Report 17885790 (Version 1)
Quarter: 2020Q2

REPORT INFORMATION
  Report Type: Spontaneous
  Country: CA (occurrence: CA)
  Receive Date: 20200611
  Receipt Date: 20200611
  Transmission Date: 20200714
  Serious: Yes (Hospitalization, Other)
  Sender: FDA-Public Use
  Company Number: CA-TEVA-2020-CA-1246968

PATIENT
  Age: 62 Year
  Sex: Male

DRUGS (5)
  1. NEORAL [Suspect]
     Active Substance: CYCLOSPORINE
     Indication: PRODUCT USED FOR UNKNOWN INDICATION
     Route: 065
  2. METHOTREXATE. [Suspect]
     Active Substance: METHOTREXATE
     Indication: PRODUCT USED FOR UNKNOWN INDICATION
     Route: 065
  3. COSENTYX [Suspect]
     Active Substance: SECUKINUMAB
     Indication: PSORIASIS
     Route: 058
  4. OTEZLA [Concomitant]
     Active Substance: APREMILAST
  5. AMEVIVE [Concomitant]
     Active Substance: ALEFACEPT
     Route: 030

REACTIONS (6)
  - Pruritus [Unknown]
  - Chills [Unknown]
  - Rash pustular [Unknown]
  - Drug ineffective [Unknown]
  - Enterococcal infection [Unknown]
  - Pyrexia [Unknown]
